FAERS Safety Report 24254273 (Version 1)
Quarter: 2024Q3

REPORT INFORMATION
  Report Type: Spontaneous
  Country: US (occurrence: US)
  Receive Date: 20240827
  Receipt Date: 20240827
  Transmission Date: 20241017
  Serious: Yes (Other)
  Sender: GLAND PHARMA
  Company Number: US-GLANDPHARMA-US-2024GLNLIT00660

PATIENT
  Age: 20 Year
  Sex: Male

DRUGS (1)
  1. HEPARIN SODIUM [Suspect]
     Active Substance: HEPARIN SODIUM
     Indication: Jugular vein thrombosis
     Route: 065

REACTIONS (4)
  - Lemierre syndrome [Recovered/Resolved]
  - Septic pulmonary embolism [Recovered/Resolved]
  - Infectious pleural effusion [Recovered/Resolved]
  - Haemothorax [Recovered/Resolved]
